FAERS Safety Report 7909712-6 (Version None)
Quarter: 2011Q4

REPORT INFORMATION
  Report Type: 
  Country: None (occurrence: None)
  Receive Date: 20111111
  Receipt Date: 20111103
  Transmission Date: 20120403
  Serious: Yes (Other)
  Sender: FDA-Public Use
  Company Number: PHHY2011JP099196

PATIENT
  Sex: Male

DRUGS (1)
  1. ALLOPURINOL [Suspect]
     Dosage: 300 MG, UNK
     Route: 064

REACTIONS (4)
  - RESPIRATORY DISTRESS [None]
  - FOETAL EXPOSURE DURING PREGNANCY [None]
  - APGAR SCORE LOW [None]
  - PREMATURE BABY [None]
